FAERS Safety Report 8863408 (Version 1)
Quarter: 2012Q4

REPORT INFORMATION
  Report Type: 
  Country: US (occurrence: US)
  Receive Date: 20121024
  Receipt Date: 20121024
  Transmission Date: 20130627
  Serious: Yes (Other)
  Sender: FDA-Public Use
  Company Number: US-PERRIGO-12US009030

PATIENT
  Age: 41 Year
  Sex: Male
  Weight: 99.77 kg

DRUGS (3)
  1. NITETIME COUGH [Suspect]
     Indication: COUGH
     Dosage: 30 ml, single
     Route: 048
     Dates: start: 20121014, end: 20121014
  2. PRO-AIR [Concomitant]
     Indication: ASTHMA
     Dosage: UNK
     Route: 065
     Dates: start: 2009
  3. ADVAIR [Concomitant]
     Indication: ASTHMA
     Dosage: UNK
     Route: 065
     Dates: start: 1999

REACTIONS (1)
  - Asthma [Recovering/Resolving]
